FAERS Safety Report 6426443-2 (Version None)
Quarter: 2009Q4

REPORT INFORMATION
  Report Type: 
  Country: None (occurrence: None)
  Receive Date: 20091104
  Receipt Date: 20091023
  Transmission Date: 20100525
  Serious: Yes (Other)
  Sender: FDA-Public Use
  Company Number: PHHY2009CA46160

PATIENT
  Sex: Female

DRUGS (2)
  1. DIOVAN HCT [Suspect]
     Dosage: 80/12.5 MG
     Route: 048
  2. DIOVAN HCT [Suspect]
     Dosage: 80/12.5 MG
     Route: 048
     Dates: start: 20091020

REACTIONS (2)
  - BLOOD PRESSURE INCREASED [None]
  - KNEE OPERATION [None]
